FAERS Safety Report 5367104-0 (Version None)
Quarter: 2007Q2

REPORT INFORMATION
  Report Type: 
  Country: None (occurrence: None)
  Receive Date: 20070622
  Receipt Date: 20060508
  Transmission Date: 20071010
  Serious: No
  Sender: FDA-Public Use
  Company Number: US-BRISTOL-MYERS SQUIBB COMPANY-13371414

PATIENT
  Age: 73 Year
  Sex: Female
  Weight: 54 kg

DRUGS (4)
  1. SINEMET [Suspect]
     Indication: PARKINSON'S DISEASE
  2. AMBIEN [Concomitant]
  3. SYNTHROID [Concomitant]
  4. TYLENOL [Concomitant]

REACTIONS (1)
  - DYSKINESIA [None]
